FAERS Safety Report 25572101 (Version 1)
Quarter: 2025Q3

REPORT INFORMATION
  Report Type: Spontaneous
  Country: JP (occurrence: JP)
  Receive Date: 20250717
  Receipt Date: 20250717
  Transmission Date: 20251020
  Serious: Yes (Hospitalization)
  Sender: MERCK SHARP & DOHME LLC
  Company Number: JP-009507513-2275098

PATIENT
  Age: 73 Year
  Sex: Male
  Weight: 51.4 kg

DRUGS (10)
  1. KEYTRUDA [Suspect]
     Active Substance: PEMBROLIZUMAB
     Indication: Gastric cancer
     Dosage: 200MG ONCE EVERY 3 WEEKS, 1TH CYCLE
     Route: 042
     Dates: start: 20241018, end: 20241018
  2. KEYTRUDA [Suspect]
     Active Substance: PEMBROLIZUMAB
     Indication: Gastric cancer
     Dosage: 200MG ONCE EVERY 3 WEEKS, 2ND CYCLE
     Route: 042
     Dates: start: 20241108, end: 20241108
  3. KEYTRUDA [Suspect]
     Active Substance: PEMBROLIZUMAB
     Indication: Gastric cancer
     Dosage: 200MG ONCE EVERY 3 WEEKS, 3RD CYCLE
     Route: 042
     Dates: start: 20241129, end: 20241129
  4. KEYTRUDA [Suspect]
     Active Substance: PEMBROLIZUMAB
     Indication: Gastric cancer
     Dosage: 200MG ONCE EVERY 3 WEEKS, 3RD CYCLE
     Route: 042
     Dates: start: 20241220, end: 20241220
  5. CAPECITABINE [Concomitant]
     Active Substance: CAPECITABINE
     Route: 048
  6. APREPITANT [Concomitant]
     Active Substance: APREPITANT
     Route: 048
  7. MAGNESIUM OXIDE [Concomitant]
     Active Substance: MAGNESIUM OXIDE
     Route: 048
  8. MIYA-BM [Concomitant]
     Active Substance: CLOSTRIDIUM BUTYRICUM SPORES STRAIN M-55
     Route: 048
  9. DOMPERIDONE [Concomitant]
     Active Substance: DOMPERIDONE
     Route: 048
  10. SENNOSIDES [Concomitant]
     Active Substance: SENNOSIDES
     Route: 048

REACTIONS (2)
  - Immune-mediated adverse reaction [Recovering/Resolving]
  - Type 1 diabetes mellitus [Recovering/Resolving]

NARRATIVE: CASE EVENT DATE: 20250109
